FAERS Safety Report 7608169-2 (Version None)
Quarter: 2011Q3

REPORT INFORMATION
  Report Type: 
  Country: None (occurrence: None)
  Receive Date: 20110714
  Receipt Date: 20110706
  Transmission Date: 20111222
  Serious: Yes (Hospitalization)
  Sender: FDA-Public Use
  Company Number: JP-ASTELLAS-2011JP003978

PATIENT
  Age: 32 Year
  Sex: Female

DRUGS (22)
  1. METHYLPREDNISOLONE [Concomitant]
     Indication: LUPUS NEPHRITIS
     Dosage: UNK
     Route: 048
     Dates: start: 20070411, end: 20070508
  2. METHYLPREDNISOLONE [Concomitant]
     Dosage: UNK
     Route: 048
     Dates: end: 20100804
  3. TACROLIMUS [Suspect]
     Dosage: 2 MG, UNKNOWN/D
     Route: 048
     Dates: start: 20070509, end: 20070605
  4. TACROLIMUS [Suspect]
     Dosage: 3 MG, UNKNOWN/D
     Route: 048
     Dates: start: 20070606, end: 20090114
  5. FAMOTIDINE [Concomitant]
     Dosage: 10 MG, UNKNOWN/D
     Route: 048
  6. METHYLPREDNISOLONE [Concomitant]
     Dosage: 12 MG, UNKNOWN/D
     Route: 048
     Dates: start: 20070509, end: 20070522
  7. TACROLIMUS [Suspect]
     Dosage: 3 MG, UNKNOWN/D
     Route: 048
     Dates: start: 20110525
  8. METHYLPREDNISOLONE [Concomitant]
     Dosage: 8 MG, UNKNOWN/D
     Route: 048
     Dates: start: 20070606, end: 20081021
  9. METHYLPREDNISOLONE [Concomitant]
     Dosage: 12 MG, UNKNOWN/D
     Route: 048
     Dates: start: 20110406, end: 20110524
  10. METHYLPREDNISOLONE [Concomitant]
     Dosage: 10 MG, UNKNOWN/D
     Route: 048
     Dates: start: 20110525
  11. BUFFERIN [Concomitant]
     Indication: LUPUS NEPHRITIS
     Dosage: 81 MG, UNKNOWN/D
     Route: 048
  12. TACROLIMUS [Suspect]
     Indication: LUPUS NEPHRITIS
     Dosage: 3 MG, UNKNOWN/D
     Route: 048
     Dates: start: 20100407, end: 20110101
  13. TACROLIMUS [Suspect]
     Dosage: 2 MG, UNKNOWN/D
     Route: 048
     Dates: start: 20090114, end: 20100406
  14. METHYLPREDNISOLONE [Concomitant]
     Dosage: UNK
     Route: 048
     Dates: start: 20081022
  15. METHYLPREDNISOLONE [Concomitant]
     Dosage: 16 MG, UNKNOWN/D
     Route: 048
     Dates: start: 20110323, end: 20110405
  16. CALCIUM LACTATE [Concomitant]
     Dosage: 2 G, UNKNOWN/D
     Route: 048
  17. METHYLPREDNISOLONE [Concomitant]
     Dosage: 20 MG, UNKNOWN/D
     Route: 048
     Dates: start: 20110309, end: 20110322
  18. METHYLPREDNISOLONE [Concomitant]
     Dosage: UNK
     Route: 048
     Dates: start: 20070523, end: 20070605
  19. METHYLPREDNISOLONE [Concomitant]
     Dosage: 8 MG, UNKNOWN/D
     Route: 048
     Dates: start: 20100805, end: 20110101
  20. METHYLPREDNISOLONE [Concomitant]
     Dosage: 24 MG, UNKNOWN/D
     Route: 048
     Dates: start: 20110101, end: 20110308
  21. METHYLPREDNISOLONE ACETATE [Concomitant]
     Indication: LUPUS NEPHRITIS
     Dosage: 500 MG, UNKNOWN/D
     Route: 042
  22. ROCALTROL [Concomitant]
     Dosage: 0.5 UG, UNKNOWN/D
     Route: 048

REACTIONS (1)
  - LUPUS NEPHRITIS [None]
